FAERS Safety Report 25006518 (Version 1)
Quarter: 2025Q1

REPORT INFORMATION
  Report Type: Spontaneous
  Country: US (occurrence: US)
  Receive Date: 20250224
  Receipt Date: 20250224
  Transmission Date: 20250409
  Serious: No
  Sender: GLAXOSMITHKLINE
  Company Number: US-GSK-US2025020456

PATIENT
  Sex: Female

DRUGS (1)
  1. NUCALA [Suspect]
     Active Substance: MEPOLIZUMAB
     Indication: Chronic rhinosinusitis without nasal polyps
     Dosage: 100 MG, Q4W
     Dates: start: 2024

REACTIONS (4)
  - Ear pruritus [Unknown]
  - Back pain [Unknown]
  - Pain [Unknown]
  - Product use in unapproved indication [Unknown]
